FAERS Safety Report 23329603 (Version 2)
Quarter: 2023Q4

REPORT INFORMATION
  Report Type: Spontaneous
  Country: RU (occurrence: RU)
  Receive Date: 20231222
  Receipt Date: 20231226
  Transmission Date: 20240109
  Serious: Yes (Other)
  Sender: FDA-Public Use
  Company Number: RU-JNJFOC-20231234138

PATIENT

DRUGS (2)
  1. NICORETTE [Suspect]
     Active Substance: NICOTINE
     Indication: Smoking cessation therapy
     Dosage: UNK
     Route: 048
  2. NICORETTE [Suspect]
     Active Substance: NICOTINE
     Indication: Euphoric mood

REACTIONS (2)
  - Drug abuse [Unknown]
  - Nausea [Unknown]
